FAERS Safety Report 9311841 (Version 1)
Quarter: 2013Q2

REPORT INFORMATION
  Report Type: Spontaneous
  Country: BR (occurrence: BR)
  Receive Date: 20130528
  Receipt Date: 20130528
  Transmission Date: 20140414
  Serious: Yes (Other)
  Sender: FDA-Public Use
  Company Number: PHHY2013BR052765

PATIENT
  Age: 29 Year
  Sex: Female

DRUGS (4)
  1. TRILEPTAL [Suspect]
     Dosage: UNK UKN, UNK
     Dates: start: 200203
  2. TRILEPTAL [Suspect]
     Dosage: 5 DF, DAILY (2 HALF-TABLET FOLLOWED BY 4 FULL-TABLET, DAILY)
  3. TRILEPTAL [Suspect]
     Dosage: 3 DF, DAILY (3 FULL-TABLET, DAILY).
  4. TRILEPTAL [Suspect]
     Dosage: UNK UKN, UNK
     Dates: end: 201303

REACTIONS (2)
  - Electroencephalogram abnormal [Unknown]
  - Condition aggravated [Unknown]
